FAERS Safety Report 5887239-3 (Version None)
Quarter: 2008Q3

REPORT INFORMATION
  Report Type: 
  Country: None (occurrence: None)
  Receive Date: 20080915
  Receipt Date: 20080905
  Transmission Date: 20090109
  Serious: Yes (Hospitalization)
  Sender: FDA-Public Use
  Company Number: 2008BI020890

PATIENT
  Age: 43 Year
  Sex: Female
  Weight: 90.7194 kg

DRUGS (10)
  1. TYSABRI [Suspect]
     Indication: MULTIPLE SCLEROSIS
     Dosage: 300 MG; QM; IV
     Route: 042
     Dates: start: 20060809
  2. NEURONTIN [Concomitant]
  3. DETROL [Concomitant]
  4. LEXAPRO [Concomitant]
  5. IBUPROFEN [Concomitant]
  6. ADDERALL 10 [Concomitant]
  7. SINGULAIR [Concomitant]
  8. ESTRADIOL [Concomitant]
  9. MORPHINE [Concomitant]
  10. VICOPROFEN [Concomitant]

REACTIONS (2)
  - MULTIPLE SCLEROSIS [None]
  - TOOTH EXTRACTION [None]
